FAERS Safety Report 7374496-X (Version None)
Quarter: 2011Q1

REPORT INFORMATION
  Report Type: 
  Country: None (occurrence: None)
  Receive Date: 20110325
  Receipt Date: 20110118
  Transmission Date: 20110831
  Serious: No
  Sender: FDA-Public Use
  Company Number: US-MYLANLABS-2011S1001329

PATIENT
  Sex: Male

DRUGS (6)
  1. LUNESTA [Concomitant]
  2. ALLOPURINOL [Concomitant]
  3. LORTAB [Concomitant]
  4. M.V.I. [Concomitant]
  5. TESTOSTERONE [Concomitant]
     Route: 062
  6. FENTANYL-100 [Suspect]
     Indication: INTERVERTEBRAL DISC DEGENERATION
     Dosage: CHANGED Q48H
     Route: 062

REACTIONS (2)
  - DRUG WITHDRAWAL SYNDROME [None]
  - DRUG EFFECT DECREASED [None]
